FAERS Safety Report 4808148-4 (Version None)
Quarter: 2005Q4

REPORT INFORMATION
  Report Type: 
  Country: None (occurrence: None)
  Receive Date: 20051021
  Receipt Date: 20041201
  Transmission Date: 20060501
  Serious: Yes (Other)
  Sender: FDA-Public Use
  Company Number: USA041284965

PATIENT
  Age: 15 Year
  Sex: Female
  Weight: 55 kg

DRUGS (2)
  1. ZYPREXA [Suspect]
     Indication: PSYCHOTIC DISORDER
     Dates: start: 20040101, end: 20041127
  2. GEODON (ZIPRASIDON E HYDROCHLOIDE) [Concomitant]

REACTIONS (1)
  - THROMBOCYTOPENIA [None]
